FAERS Safety Report 7351972 (Version 2)
Quarter: 2014Q3

REPORT INFORMATION
  Report Type: Spontaneous
  Country: US (occurrence: None)
  Receive Date: 20100324
  Receipt Date: 20140923
  Transmission Date: 20150326
  Serious: Yes (Other)
  Sender: FDA-Public Use
  Company Number: 2010S1001241

PATIENT
  Age: 65 Year
  Sex: Female

DRUGS (13)
  1. PHOSPHO-SODA [Suspect]
     Active Substance: SODIUM PHOSPHATE, DIBASIC\SODIUM PHOSPHATE, MONOBASIC
     Indication: COLONOSCOPY
     Dosage: PO
     Route: 048
     Dates: start: 20080518
  2. COUMADIN [Concomitant]
     Active Substance: WARFARIN SODIUM
  3. AMIODARONE [Concomitant]
     Active Substance: AMIODARONE
  4. MAG-OX (MAGNESIUM OXIDE) [Concomitant]
  5. CLONAZEPAM. [Concomitant]
     Active Substance: CLONAZEPAM
  6. DICYCLOMINE [Concomitant]
     Active Substance: DICYCLOMINE HYDROCHLORIDE
  7. LIPITOR [Concomitant]
     Active Substance: ATORVASTATIN CALCIUM
  8. FUROSEMIDE. [Concomitant]
     Active Substance: FUROSEMIDE
  9. METFORMIN [Concomitant]
     Active Substance: METFORMIN HYDROCHLORIDE
  10. LEVOXYL (LEVOTHYROXINE SODIUM) [Concomitant]
  11. BIOTIN [Concomitant]
     Active Substance: BIOTIN
  12. GABAPENTIN. [Concomitant]
     Active Substance: GABAPENTIN
  13. HYZAAR (HYDROCHLOROTHIAZIDE, LOSARTAN POTASSIUM) [Concomitant]

REACTIONS (5)
  - Renal disorder [None]
  - Thrombocytopenia [None]
  - Blood parathyroid hormone increased [None]
  - Iron deficiency anaemia [None]
  - Fatigue [None]

NARRATIVE: CASE EVENT DATE: 200903
